FAERS Safety Report 9672081 (Version 1)
Quarter: 2013Q4

REPORT INFORMATION
  Report Type: Spontaneous
  Country: US (occurrence: None)
  Receive Date: 20131105
  Receipt Date: 20131105
  Transmission Date: 20140711
  Serious: Yes (Hospitalization)
  Sender: FDA-Public Use
  Company Number: None

PATIENT
  Age: 81 Year
  Sex: Male
  Weight: 83.01 kg

DRUGS (19)
  1. ZYPREXA [Suspect]
     Indication: POST-TRAUMATIC STRESS DISORDER
     Dosage: 4 TABLETS SINGLE DOSE
     Route: 048
     Dates: start: 20131006, end: 20131008
  2. ZYPREXA [Suspect]
     Indication: ANXIETY
     Dosage: 4 TABLETS SINGLE DOSE
     Route: 048
     Dates: start: 20131006, end: 20131008
  3. CLONAZEPAM [Suspect]
     Dosage: 1 TABLET
     Route: 048
  4. DEPAKOTE [Concomitant]
  5. WELLBUTRIN [Concomitant]
  6. ZOLOFT [Concomitant]
  7. ZYPREXA [Concomitant]
  8. CRESTOR [Concomitant]
  9. DEXILANT [Concomitant]
  10. RANEXA [Concomitant]
  11. LEVO-THYROXINE [Concomitant]
  12. SINEMET [Concomitant]
  13. COMTAN [Concomitant]
  14. METFORMIN [Concomitant]
  15. VIT C [Concomitant]
  16. VIT D3 [Concomitant]
  17. CINNAMON [Concomitant]
  18. STOOL SOFTENER [Concomitant]
  19. CALCIUM [Concomitant]

REACTIONS (10)
  - Hypomania [None]
  - Insomnia [None]
  - Anger [None]
  - Flight of ideas [None]
  - Anxiety [None]
  - Psychotic disorder [None]
  - Speech disorder [None]
  - Dysgraphia [None]
  - Hallucination [None]
  - Cerebrovascular accident [None]
